FAERS Safety Report 11912471 (Version 1)
Quarter: 2016Q1

REPORT INFORMATION
  Report Type: Spontaneous
  Country: US (occurrence: US)
  Receive Date: 20160113
  Receipt Date: 20160113
  Transmission Date: 20160526
  Serious: No
  Sender: FDA-Public Use
  Company Number: US-B.I. PHARMACEUTICALS,INC./RIDGEFIELD-2016-BI-00517BP

PATIENT
  Age: 66 Year
  Sex: Female
  Weight: 61.23 kg

DRUGS (6)
  1. LORTAB [Concomitant]
     Active Substance: ACETAMINOPHEN\HYDROCODONE BITARTRATE
     Indication: PAIN
     Route: 048
     Dates: start: 2012
  2. COMBIVENT [Suspect]
     Active Substance: ALBUTEROL SULFATE\IPRATROPIUM BROMIDE
     Indication: ASTHMA
     Dosage: DOSE PER APPLICATION: 20MCG/100 MCG
     Route: 055
     Dates: start: 2014
  3. COMBIVENT [Suspect]
     Active Substance: ALBUTEROL SULFATE\IPRATROPIUM BROMIDE
     Dosage: FORMULATION: INHALATION AEROSOL; DOSE PER APPLICATION:18MCG/103MCG
     Route: 055
  4. CARISOPRODOL. [Concomitant]
     Active Substance: CARISOPRODOL
     Indication: INSOMNIA
     Route: 048
     Dates: start: 2012
  5. AMLODIPINE [Concomitant]
     Active Substance: AMLODIPINE BESYLATE
     Indication: HYPERTENSION
     Dosage: 10 MG
     Route: 048
     Dates: start: 2012
  6. CLONIDINE. [Concomitant]
     Active Substance: CLONIDINE
     Indication: HYPERTENSION
     Dosage: 0.9 MG
     Route: 048
     Dates: start: 2012

REACTIONS (2)
  - Asthma [Recovered/Resolved]
  - Off label use [Unknown]

NARRATIVE: CASE EVENT DATE: 20160105
